FAERS Safety Report 4911923-9 (Version None)
Quarter: 2006Q1

REPORT INFORMATION
  Report Type: 
  Country: None (occurrence: None)
  Receive Date: 20060213
  Receipt Date: 20060213
  Transmission Date: 20060701
  Serious: Yes (Life-Threatening, Hospitalization)
  Sender: FDA-Public Use
  Company Number: None

PATIENT
  Age: 78 Year
  Sex: Male
  Weight: 82 kg

DRUGS (13)
  1. METFORMIN HCL [Suspect]
     Indication: DIABETES MELLITUS NON-INSULIN-DEPENDENT
     Dosage: 500 MG PO QD
     Route: 048
  2. ALLOPURINOL [Concomitant]
  3. LISINOPRIL [Concomitant]
  4. VERAPAMIL [Concomitant]
  5. PRILOSEC [Concomitant]
  6. ISORDIL [Concomitant]
  7. DVN [Concomitant]
  8. AMBIEN [Concomitant]
  9. HLTE [Concomitant]
  10. LOPRESSOR [Concomitant]
  11. K-DUR 10 [Concomitant]
  12. MOBIC [Concomitant]
  13. IBUPROFEN [Concomitant]

REACTIONS (6)
  - BRADYCARDIA [None]
  - CREATININE RENAL CLEARANCE DECREASED [None]
  - HYPERKALAEMIA [None]
  - LACTIC ACIDOSIS [None]
  - METABOLIC ACIDOSIS [None]
  - RESPIRATORY FAILURE [None]
